FAERS Safety Report 26181086 (Version 1)
Quarter: 2025Q4

REPORT INFORMATION
  Report Type: Spontaneous
  Country: US (occurrence: US)
  Receive Date: 20251221
  Receipt Date: 20251221
  Transmission Date: 20260117
  Serious: Yes (Hospitalization)
  Sender: AMGEN
  Company Number: US-AMGEN-USASP2025248662

PATIENT
  Age: 53 Year
  Sex: Male

DRUGS (4)
  1. PREDNISONE [Suspect]
     Active Substance: PREDNISONE
     Indication: Prostate cancer
     Dosage: UNK
     Route: 065
     Dates: start: 202203
  2. PREDNISONE [Suspect]
     Active Substance: PREDNISONE
     Dosage: UNK, RESUMED
     Route: 065
     Dates: start: 202205
  3. ABIRATERONE [Suspect]
     Active Substance: ABIRATERONE
     Indication: Prostate cancer
     Dosage: UNK
     Route: 065
     Dates: start: 202203
  4. ABIRATERONE [Suspect]
     Active Substance: ABIRATERONE
     Dosage: UNK
     Route: 065
     Dates: start: 202205

REACTIONS (3)
  - Drug-induced liver injury [Unknown]
  - Prostate cancer metastatic [Unknown]
  - Off label use [Unknown]
